FAERS Safety Report 23621580 (Version 1)
Quarter: 2024Q1

REPORT INFORMATION
  Report Type: Spontaneous
  Country: US (occurrence: US)
  Receive Date: 20240312
  Receipt Date: 20240312
  Transmission Date: 20240410
  Serious: Yes (Other)
  Sender: FDA-Public Use
  Company Number: US-HIKMA PHARMACEUTICALS-US-H14001-24-01761

PATIENT
  Sex: Male
  Weight: 3.46 kg

DRUGS (3)
  1. METHYLPREDNISOLONE [Suspect]
     Active Substance: METHYLPREDNISOLONE
     Indication: Interstitial lung disease
     Dosage: 1 MILLIGRAM/KILOGRAM, BID, FOR 8 DAYS
     Route: 042
  2. METHYLPREDNISOLONE [Suspect]
     Active Substance: METHYLPREDNISOLONE
     Dosage: 10 MILLIGRAM/KILOGRAM, QD, FOR 3 DAYS
     Route: 042
  3. BUDESONIDE [Concomitant]
     Active Substance: BUDESONIDE
     Indication: Interstitial lung disease
     Dosage: 0.25 MILLIGRAM, QD
     Route: 055

REACTIONS (2)
  - Pulmonary hypertension [Unknown]
  - Viral infection [Unknown]
